FAERS Safety Report 10033138 (Version 2)
Quarter: 2014Q1

REPORT INFORMATION
  Report Type: Spontaneous
  Country: NL (occurrence: NL)
  Receive Date: 20140324
  Receipt Date: 20140324
  Transmission Date: 20141002
  Serious: Yes (Other)
  Sender: FDA-Public Use
  Company Number: NL-PFIZER INC-2014081617

PATIENT
  Sex: Female

DRUGS (2)
  1. XANAX RETARD [Suspect]
     Indication: ANXIETY DISORDER
     Dosage: 1 MG, 3X/DAY
  2. XANAX RETARD [Suspect]
     Dosage: 2 MG, 3X/DAY

REACTIONS (5)
  - Suicidal ideation [Not Recovered/Not Resolved]
  - Dysstasia [Not Recovered/Not Resolved]
  - Anxiety [Unknown]
  - Muscular weakness [Unknown]
  - Dysgeusia [Unknown]
